FAERS Safety Report 7150622-2 (Version None)
Quarter: 2010Q4

REPORT INFORMATION
  Report Type: 
  Country: None (occurrence: None)
  Receive Date: 20101206
  Receipt Date: 20101206
  Transmission Date: 20110411
  Serious: Yes (Hospitalization)
  Sender: FDA-Public Use
  Company Number: None

PATIENT
  Age: 82 Year
  Sex: Female
  Weight: 83.6 kg

DRUGS (1)
  1. ADCIRCA [Suspect]
     Indication: ESSENTIAL HYPERTENSION
     Dosage: ADCIRCA ONCE A DAY CUTANEOUS
     Route: 003
     Dates: start: 20101105, end: 20101201

REACTIONS (5)
  - ABASIA [None]
  - BACK PAIN [None]
  - DYSPNOEA [None]
  - HEADACHE [None]
  - HYPOPHAGIA [None]
